FAERS Safety Report 22307618 (Version 1)
Quarter: 2023Q2

REPORT INFORMATION
  Report Type: Spontaneous
  Country: US (occurrence: None)
  Receive Date: 20230511
  Receipt Date: 20230511
  Transmission Date: 20230722
  Serious: No
  Sender: FDA-Public Use
  Company Number: US-ROCHE-3162289

PATIENT
  Sex: Male

DRUGS (2)
  1. OCREVUS [Suspect]
     Active Substance: OCRELIZUMAB
     Indication: Multiple sclerosis
     Dosage: 300MG/10 ML ONCE IN EVERY 6 MONTHS.
     Route: 041
     Dates: start: 20220614
  2. OCREVUS [Suspect]
     Active Substance: OCRELIZUMAB
     Dosage: 300MG/10 ML ONCE IN EVERY 6 MONTHS.
     Route: 065
     Dates: start: 20220628

REACTIONS (2)
  - Off label use [Unknown]
  - No adverse event [Unknown]
